FAERS Safety Report 8676842 (Version 2)
Quarter: 2012Q4

REPORT INFORMATION
  Report Type: 
  Country: US (occurrence: US)
  Receive Date: 20120723
  Receipt Date: 20120924
  Transmission Date: 20130627
  Serious: No
  Sender: FDA-Public Use
  Company Number: US-PFIZER INC-2012173315

PATIENT
  Age: 71 Year
  Sex: Male
  Weight: 77 kg

DRUGS (5)
  1. SUTENT [Suspect]
     Indication: THYMOMA MALIGNANT
     Dosage: 25 mg, 1x/day 4 week on 2 week off
     Route: 048
     Dates: start: 20120523, end: 20120523
  2. SUTENT [Suspect]
     Indication: THYMOMA MALIGNANT
  3. DOXAZOSIN [Concomitant]
     Dosage: 8 mg, 1x/day
  4. SYMBICORT [Concomitant]
     Dosage: 80 ug, 2x/day
     Route: 055
  5. MIRTAZAPINE [Concomitant]
     Dosage: 15 mg, qhs

REACTIONS (9)
  - Drug intolerance [Unknown]
  - Fatigue [Unknown]
  - Decreased appetite [Unknown]
  - Weight decreased [Unknown]
  - Gastrooesophageal reflux disease [Unknown]
  - Dyspnoea [Unknown]
  - Platelet count decreased [Unknown]
  - White blood cell count decreased [Unknown]
  - Neutrophil count decreased [Unknown]
